FAERS Safety Report 16301016 (Version 2)
Quarter: 2020Q2

REPORT INFORMATION
  Report Type: Spontaneous
  Country: US (occurrence: US)
  Receive Date: 20190510
  Receipt Date: 20200421
  Transmission Date: 20200713
  Serious: Yes (Hospitalization, Other)
  Sender: FDA-Public Use
  Company Number: US-ASTRAZENECA-2019SE64898

PATIENT
  Age: 58 Year
  Sex: Male
  Weight: 77.6 kg

DRUGS (61)
  1. CLINDAMYCIN. [Concomitant]
     Active Substance: CLINDAMYCIN
  2. OXYBUTYNIN. [Concomitant]
     Active Substance: OXYBUTYNIN CHLORIDE
  3. COMBIVENT [Concomitant]
     Active Substance: ALBUTEROL SULFATE\IPRATROPIUM BROMIDE
  4. NITROFURANTOIN. [Concomitant]
     Active Substance: NITROFURANTOIN
  5. METHOTREXATE. [Concomitant]
     Active Substance: METHOTREXATE
     Indication: NEOPLASM MALIGNANT
     Route: 065
     Dates: start: 20090424, end: 20190305
  6. RANITIDINE. [Concomitant]
     Active Substance: RANITIDINE
     Route: 065
     Dates: start: 20110222, end: 20110322
  7. MILK OF MAGNESIA [Concomitant]
     Active Substance: MAGNESIUM HYDROXIDE
     Route: 065
     Dates: start: 2017, end: 2018
  8. CLOBETASOL [Concomitant]
     Active Substance: CLOBETASOL
  9. AMBIEN [Concomitant]
     Active Substance: ZOLPIDEM TARTRATE
  10. CIPROFLOXACIN. [Concomitant]
     Active Substance: CIPROFLOXACIN
  11. PRILOSEC [Suspect]
     Active Substance: OMEPRAZOLE MAGNESIUM
     Indication: GASTROOESOPHAGEAL REFLUX DISEASE
     Route: 048
  12. PROTONIX [Suspect]
     Active Substance: PANTOPRAZOLE SODIUM
     Indication: GASTROOESOPHAGEAL REFLUX DISEASE
     Dosage: GENERIC
     Route: 065
     Dates: start: 20150204, end: 20150410
  13. FOLIC ACID. [Concomitant]
     Active Substance: FOLIC ACID
     Indication: VITAMIN B COMPLEX DEFICIENCY
     Route: 065
     Dates: start: 20090424, end: 20120812
  14. NORCO [Concomitant]
     Active Substance: ACETAMINOPHEN\HYDROCODONE BITARTRATE
     Indication: PAIN MANAGEMENT
     Route: 065
     Dates: start: 20170522, end: 20170621
  15. ASPIRIN. [Concomitant]
     Active Substance: ASPIRIN
     Indication: PAIN
     Route: 065
     Dates: start: 2015, end: 2017
  16. PREDNISONE. [Concomitant]
     Active Substance: PREDNISONE
  17. AZITHROMYCIN ANHYDROUS. [Concomitant]
     Active Substance: AZITHROMYCIN ANHYDROUS
  18. LUNESTA [Concomitant]
     Active Substance: ESZOPICLONE
  19. KETOCONAZOLE. [Concomitant]
     Active Substance: KETOCONAZOLE
  20. FUROSEMIDE. [Concomitant]
     Active Substance: FUROSEMIDE
  21. ONDANSETRON [Concomitant]
     Active Substance: ONDANSETRON
  22. NEXIUM [Suspect]
     Active Substance: ESOMEPRAZOLE MAGNESIUM
     Indication: GASTROOESOPHAGEAL REFLUX DISEASE
     Dosage: GENERIC
     Route: 065
     Dates: start: 20170421, end: 20181214
  23. NEXIUM 24HR [Suspect]
     Active Substance: ESOMEPRAZOLE MAGNESIUM
     Route: 048
  24. TYLENOL [Concomitant]
     Active Substance: ACETAMINOPHEN
     Indication: PAIN
     Route: 065
     Dates: start: 2013, end: 2017
  25. TUMS [Concomitant]
     Active Substance: CALCIUM CARBONATE
     Route: 065
     Dates: start: 2017
  26. FLUOCINONIDE. [Concomitant]
     Active Substance: FLUOCINONIDE
  27. TRAZODONE [Concomitant]
     Active Substance: TRAZODONE HYDROCHLORIDE
  28. CEPHALEXIN. [Concomitant]
     Active Substance: CEPHALEXIN
  29. LEVOFLOXACIN. [Concomitant]
     Active Substance: LEVOFLOXACIN
  30. NEXIUM [Suspect]
     Active Substance: ESOMEPRAZOLE MAGNESIUM
     Indication: GASTROOESOPHAGEAL REFLUX DISEASE
     Dosage: GENERIC
     Route: 065
     Dates: start: 20190311
  31. SIMVASTATIN. [Concomitant]
     Active Substance: SIMVASTATIN
     Indication: BLOOD CHOLESTEROL DECREASED
     Route: 065
     Dates: start: 20110301, end: 20190528
  32. IBUPROFEN. [Concomitant]
     Active Substance: IBUPROFEN
     Indication: PAIN
     Route: 065
     Dates: start: 2017
  33. TERBINAFINE. [Concomitant]
     Active Substance: TERBINAFINE
  34. ISONIAZID. [Concomitant]
     Active Substance: ISONIAZID
  35. SIMVASTATIN. [Concomitant]
     Active Substance: SIMVASTATIN
  36. VALIUM [Concomitant]
     Active Substance: DIAZEPAM
  37. PREVIDENT [Concomitant]
     Active Substance: SODIUM FLUORIDE
  38. MORPHINE [Concomitant]
     Active Substance: MORPHINE
  39. TAMIFLU [Concomitant]
     Active Substance: OSELTAMIVIR PHOSPHATE
  40. AGGRENOX [Concomitant]
     Active Substance: ASPIRIN\DIPYRIDAMOLE
  41. ACETAMI/CODEIN [Concomitant]
  42. NEXIUM [Suspect]
     Active Substance: ESOMEPRAZOLE MAGNESIUM
     Indication: GASTROOESOPHAGEAL REFLUX DISEASE
     Dosage: 20-40 MG 1-2 TIMES DAILY
     Route: 048
     Dates: start: 20110301, end: 20170727
  43. PREVACID [Suspect]
     Active Substance: LANSOPRAZOLE
     Route: 065
  44. ROLAIDS [Concomitant]
     Active Substance: CALCIUM CARBONATE\MAGNESIUM HYDROXIDE
     Route: 065
     Dates: start: 2000, end: 2011
  45. MINOCYCLINE [Concomitant]
     Active Substance: MINOCYCLINE HYDROCHLORIDE
  46. METHYLPREDNISOLONE. [Concomitant]
     Active Substance: METHYLPREDNISOLONE
  47. NEXIUM [Suspect]
     Active Substance: ESOMEPRAZOLE MAGNESIUM
     Indication: GASTROOESOPHAGEAL REFLUX DISEASE
     Route: 048
  48. PRILOSEC [Suspect]
     Active Substance: OMEPRAZOLE MAGNESIUM
     Indication: GASTROOESOPHAGEAL REFLUX DISEASE
     Dosage: GENERIC
     Route: 065
     Dates: start: 20150423
  49. AMOXICILLIN. [Concomitant]
     Active Substance: AMOXICILLIN
  50. TERBINAFINE. [Concomitant]
     Active Substance: TERBINAFINE
  51. VENTOLIN HFA [Concomitant]
     Active Substance: ALBUTEROL SULFATE
  52. HYDROCOD/IBU [Concomitant]
  53. TRAMADOL. [Concomitant]
     Active Substance: TRAMADOL
  54. TIZANIDINE. [Concomitant]
     Active Substance: TIZANIDINE
  55. NEXIUM [Suspect]
     Active Substance: ESOMEPRAZOLE MAGNESIUM
     Indication: GASTROOESOPHAGEAL REFLUX DISEASE
     Dosage: GENERIC
     Route: 065
     Dates: start: 20160405
  56. NEXIUM I.V. [Suspect]
     Active Substance: ESOMEPRAZOLE SODIUM
     Route: 042
  57. LISINOPRIL. [Concomitant]
     Active Substance: LISINOPRIL
     Indication: HYPERTENSION
     Route: 065
     Dates: start: 20140108, end: 20170311
  58. DOXYCYCLINE HYCLATE. [Concomitant]
     Active Substance: DOXYCYCLINE HYCLATE
  59. SMZ/TMP DS [Concomitant]
     Active Substance: SULFAMETHOXAZOLE\TRIMETHOPRIM
  60. TAMSULOSIN [Concomitant]
     Active Substance: TAMSULOSIN
  61. DITROPAN [Concomitant]
     Active Substance: OXYBUTYNIN CHLORIDE

REACTIONS (3)
  - Renal failure [Unknown]
  - Chronic kidney disease [Not Recovered/Not Resolved]
  - Acute kidney injury [Not Recovered/Not Resolved]

NARRATIVE: CASE EVENT DATE: 2017
